FAERS Safety Report 21625660 (Version 2)
Quarter: 2023Q4

REPORT INFORMATION
  Report Type: Spontaneous
  Country: US (occurrence: None)
  Receive Date: 20221122
  Receipt Date: 20231126
  Transmission Date: 20240110
  Serious: No
  Sender: FDA-Public Use
  Company Number: US-ROCHE-3111613

PATIENT
  Age: 38 Year
  Sex: Female
  Weight: 59.02 kg

DRUGS (3)
  1. HERCEPTIN [Suspect]
     Active Substance: TRASTUZUMAB
     Indication: HER2 positive breast cancer
     Dosage: INITIAL FIRST LOADING DOSE
     Route: 042
     Dates: start: 20210916
  2. HERCEPTIN [Suspect]
     Active Substance: TRASTUZUMAB
     Dosage: GIVEN SAME DAYS AS PERJETA
     Route: 042
     Dates: start: 20211007
  3. PERJETA [Suspect]
     Active Substance: PERTUZUMAB
     Indication: HER2 positive breast cancer
     Dosage: GIVEN SAME DAYS AS HERCEPTIN
     Route: 042
     Dates: start: 20210916

REACTIONS (1)
  - Maternal exposure during pregnancy [Unknown]
